FAERS Safety Report 18792601 (Version 1)
Quarter: 2021Q1

REPORT INFORMATION
  Report Type: Spontaneous
  Country: US (occurrence: US)
  Receive Date: 20210127
  Receipt Date: 20210127
  Transmission Date: 20210419
  Serious: Yes (Other)
  Sender: FDA-Public Use
  Company Number: US-PACIRA-2021000015

PATIENT
  Sex: Female

DRUGS (8)
  1. FENTANYL. [Concomitant]
     Active Substance: FENTANYL
     Indication: SEDATIVE THERAPY
     Dosage: 25?100 MICROG AS NEEDED
     Route: 065
  2. KETOROLAC [Concomitant]
     Active Substance: KETOROLAC TROMETHAMINE
     Indication: PAIN MANAGEMENT
     Dosage: 30 MG
     Route: 065
  3. EXPAREL [Suspect]
     Active Substance: BUPIVACAINE
     Indication: POSTOPERATIVE ANALGESIA
     Dosage: 20ML EXPAREL MIXED WITH 40ML NORMAL SALINE
     Route: 050
  4. NORMAL SALINE [Concomitant]
     Active Substance: SODIUM CHLORIDE
     Indication: POSTOPERATIVE ANALGESIA
     Dosage: 40ML NORMAL SALINE MIXED WITH 20ML EXPAREL
     Route: 050
  5. HYDROMORPHONE [Concomitant]
     Active Substance: HYDROMORPHONE
     Indication: PAIN MANAGEMENT
     Dosage: HYDROMORPHONE (0.2MG WITH 10?MIN LOCKOUT) OR MORPHINE (1MG WITH 10?MIN LOCKOUT)
     Route: 065
  6. ACETAMINOPHEN. [Concomitant]
     Active Substance: ACETAMINOPHEN
     Indication: PAIN MANAGEMENT
     Dosage: 1000 MG INSTEAD OF KETOROLAC IF CONTRAINDICATED
     Route: 042
  7. MORPHINE [Concomitant]
     Active Substance: MORPHINE
     Indication: PAIN MANAGEMENT
     Dosage: MORPHINE (1MG WITH 10?MIN LOCKOUT) OR HYDROMORPHONE (0.2MG WITH 10?MIN LOCKOUT)
     Route: 065
  8. MIDAZOLAM. [Concomitant]
     Active Substance: MIDAZOLAM
     Indication: SEDATIVE THERAPY
     Dosage: 0.25?2 MG AS NEEDED
     Route: 065

REACTIONS (1)
  - Endotracheal intubation [Unknown]
